FAERS Safety Report 20726403 (Version 4)
Quarter: 2023Q1

REPORT INFORMATION
  Report Type: Report from Study
  Country: US (occurrence: US)
  Receive Date: 20220419
  Receipt Date: 20230316
  Transmission Date: 20230418
  Serious: Yes (Other)
  Sender: FDA-Public Use
  Company Number: US-JAZZ-2021-US-000318

PATIENT
  Age: 76 Year
  Sex: Male

DRUGS (4)
  1. XYREM [Suspect]
     Active Substance: SODIUM OXYBATE
     Indication: Narcolepsy
     Dosage: 2.25 GRAM, BID
     Route: 048
     Dates: start: 202002, end: 202002
  2. XYREM [Suspect]
     Active Substance: SODIUM OXYBATE
     Indication: Cataplexy
     Dosage: DOSE ADJUSTMENT
     Route: 048
     Dates: start: 202002, end: 202011
  3. XYREM [Suspect]
     Active Substance: SODIUM OXYBATE
     Indication: Somnolence
     Dosage: 2 GRAM, BID
     Route: 048
     Dates: start: 202011, end: 202012
  4. XYREM [Suspect]
     Active Substance: SODIUM OXYBATE
     Dosage: 1.75 GRAM

REACTIONS (5)
  - Basal cell carcinoma [Unknown]
  - Lung disorder [Recovered/Resolved]
  - Surgery [Unknown]
  - COVID-19 [Unknown]
  - Intentional product use issue [Unknown]

NARRATIVE: CASE EVENT DATE: 20201201
